FAERS Safety Report 5270168-6 (Version None)
Quarter: 2007Q1

REPORT INFORMATION
  Report Type: 
  Country: None (occurrence: None)
  Receive Date: 20070320
  Receipt Date: 20070312
  Transmission Date: 20070707
  Serious: Yes (Disabling)
  Sender: FDA-Public Use
  Company Number: US-ROCHE-477879

PATIENT
  Age: 45 Year
  Sex: Female

DRUGS (10)
  1. PEGASYS [Suspect]
     Indication: HEPATITIS C VIRUS
     Route: 065
     Dates: start: 20061031, end: 20070126
  2. PEGASYS [Suspect]
     Route: 065
     Dates: start: 20070131
  3. RIBAVIRIN [Suspect]
     Indication: HEPATITIS C VIRUS
     Route: 065
     Dates: start: 20061031, end: 20070126
  4. RIBAVIRIN [Suspect]
     Route: 065
     Dates: start: 20070131
  5. TRANQUILIZERS [Concomitant]
  6. CYMBALTA [Concomitant]
     Indication: ANTIDEPRESSANT THERAPY
     Dates: start: 20061015, end: 20070126
  7. XANAX [Concomitant]
  8. SLEEPING PILL NOS [Concomitant]
  9. HEPATITIS A VACCINE [Concomitant]
     Indication: PROPHYLAXIS
     Dates: start: 20061115
  10. HEPATITIS B VACCINE [Concomitant]
     Indication: PROPHYLAXIS
     Dates: start: 20061115

REACTIONS (26)
  - ABDOMINAL PAIN UPPER [None]
  - ALCOHOLISM [None]
  - ARTHRALGIA [None]
  - BACK PAIN [None]
  - CONFUSIONAL STATE [None]
  - DEHYDRATION [None]
  - DIARRHOEA [None]
  - DIZZINESS [None]
  - DRUG INEFFECTIVE [None]
  - DYSPNOEA [None]
  - DYSPNOEA EXERTIONAL [None]
  - FEELING ABNORMAL [None]
  - HEPATITIS C [None]
  - HYPERTENSION [None]
  - HYPOTRICHOSIS [None]
  - INJECTION SITE RASH [None]
  - INTERVERTEBRAL DISC DISORDER [None]
  - LEGAL PROBLEM [None]
  - NAUSEA [None]
  - NECK PAIN [None]
  - OSTEOARTHRITIS [None]
  - PAINFUL DEFAECATION [None]
  - PSYCHOMOTOR HYPERACTIVITY [None]
  - RASH [None]
  - VIRAL LOAD INCREASED [None]
  - WEIGHT INCREASED [None]
